FAERS Safety Report 5285374-4 (Version None)
Quarter: 2007Q2

REPORT INFORMATION
  Report Type: 
  Country: None (occurrence: None)
  Receive Date: 20070403
  Receipt Date: 20070322
  Transmission Date: 20071010
  Serious: Yes (Other)
  Sender: FDA-Public Use
  Company Number: US-PFIZER INC-2007024591

PATIENT
  Sex: Female
  Weight: 86.2 kg

DRUGS (9)
  1. CHANTIX [Suspect]
     Route: 048
     Dates: start: 20061201, end: 20070301
  2. NICOTROL [Suspect]
     Dates: start: 19970101, end: 20070101
  3. SEROQUEL [Concomitant]
     Route: 048
  4. LORAZEPAM [Concomitant]
     Route: 048
  5. LIPITOR [Concomitant]
     Route: 048
  6. PREMARIN [Concomitant]
     Route: 048
  7. CALCIUM [Concomitant]
     Route: 048
  8. VITAMINS [Concomitant]
     Route: 048
  9. ACETYLSALICYLIC ACID SRT [Concomitant]
     Route: 048

REACTIONS (8)
  - CEREBROVASCULAR ACCIDENT [None]
  - DISORIENTATION [None]
  - FEAR OF DEATH [None]
  - FEELING ABNORMAL [None]
  - HEART RATE DECREASED [None]
  - INSOMNIA [None]
  - MEMORY IMPAIRMENT [None]
  - SPEECH DISORDER [None]
